FAERS Safety Report 15743223 (Version 1)
Quarter: 2018Q4

REPORT INFORMATION
  Report Type: Spontaneous
  Country: GB (occurrence: GB)
  Receive Date: 20181220
  Receipt Date: 20181220
  Transmission Date: 20190205
  Serious: Yes (Hospitalization)
  Sender: FDA-Public Use
  Company Number: GB-TEVA-2018-GB-988308

PATIENT
  Age: 74 Year
  Sex: Male

DRUGS (1)
  1. NITROFURANTOIN. [Suspect]
     Active Substance: NITROFURANTOIN
     Dosage: 200 MILLIGRAM DAILY; FOR 7 DAYS
     Route: 048
     Dates: start: 20181102, end: 20181109

REACTIONS (2)
  - Rash [Recovering/Resolving]
  - Hypersensitivity [Unknown]
